FAERS Safety Report 16058902 (Version 1)
Quarter: 2019Q1

REPORT INFORMATION
  Report Type: Spontaneous
  Country: US (occurrence: US)
  Receive Date: 20190311
  Receipt Date: 20190311
  Transmission Date: 20190418
  Serious: No
  Sender: FDA-Public Use
  Company Number: US-PFIZER INC-2018205114

PATIENT
  Sex: Female

DRUGS (2)
  1. PROTONIX [Suspect]
     Active Substance: PANTOPRAZOLE SODIUM
     Indication: OESOPHAGEAL ULCER
     Dosage: 40 MG, UNK
  2. LYRICA [Suspect]
     Active Substance: PREGABALIN
     Dosage: 50 MG, UNK

REACTIONS (4)
  - Stress [Unknown]
  - Functional gastrointestinal disorder [Unknown]
  - Intentional product misuse [Unknown]
  - Malaise [Unknown]

NARRATIVE: CASE EVENT DATE: 20190224
